FAERS Safety Report 23057447 (Version 4)
Quarter: 2023Q4

REPORT INFORMATION
  Report Type: Report from Study
  Country: FR (occurrence: FR)
  Receive Date: 20231012
  Receipt Date: 20231130
  Transmission Date: 20240110
  Serious: Yes (Other)
  Sender: FDA-Public Use
  Company Number: None

PATIENT
  Age: 56 Year
  Sex: Female
  Weight: 54 kg

DRUGS (6)
  1. SACITUZUMAB GOVITECAN-HZIY [Suspect]
     Active Substance: SACITUZUMAB GOVITECAN-HZIY
     Indication: Hormone receptor positive HER2 negative breast cancer
     Dosage: 460 MG C2D1 AND C2D8
     Route: 042
     Dates: start: 20230720, end: 20230727
  2. SACITUZUMAB GOVITECAN-HZIY [Suspect]
     Active Substance: SACITUZUMAB GOVITECAN-HZIY
     Dosage: 280 MG, 50% DOSE REDUCTION, C3D1 10 MG/KG
     Route: 042
     Dates: start: 20230811
  3. SACITUZUMAB GOVITECAN-HZIY [Suspect]
     Active Substance: SACITUZUMAB GOVITECAN-HZIY
     Dosage: 280 MG, 50% DOSE REDUCTION, C3D8 10 MG/KG
     Route: 042
     Dates: start: 20230817
  4. SACITUZUMAB GOVITECAN-HZIY [Suspect]
     Active Substance: SACITUZUMAB GOVITECAN-HZIY
     Dosage: 270 MG (LOSS OF 1 KG), C4D1
     Route: 042
     Dates: start: 20230831
  5. SACITUZUMAB GOVITECAN-HZIY [Suspect]
     Active Substance: SACITUZUMAB GOVITECAN-HZIY
     Dosage: 270 MG (LOSS OF 1 KG), C4D8
     Route: 042
     Dates: start: 20230907
  6. SACITUZUMAB GOVITECAN-HZIY [Suspect]
     Active Substance: SACITUZUMAB GOVITECAN-HZIY
     Dosage: C5D1
     Route: 042
     Dates: start: 20230921

REACTIONS (3)
  - Alveolitis [Recovering/Resolving]
  - Cholestasis [Not Recovered/Not Resolved]
  - Hepatic cytolysis [Not Recovered/Not Resolved]
